FAERS Safety Report 23808294 (Version 1)
Quarter: 2024Q2

REPORT INFORMATION
  Report Type: Spontaneous
  Country: US (occurrence: US)
  Receive Date: 20240502
  Receipt Date: 20240502
  Transmission Date: 20240715
  Serious: Yes (Other)
  Sender: FDA-Public Use
  Company Number: US-BAYER-2024A064160

PATIENT
  Age: 40 Year
  Sex: Male

DRUGS (2)
  1. JIVI [Suspect]
     Active Substance: DAMOCTOCOG ALFA PEGOL
     Indication: Factor VIII deficiency
     Dosage: 1 DF
     Dates: start: 20240420, end: 20240420
  2. JIVI [Suspect]
     Active Substance: DAMOCTOCOG ALFA PEGOL
     Indication: Factor VIII deficiency
     Dosage: 4315 IU, ONCE EVERY 5 DAYS AND AS NEEDED
     Route: 042
     Dates: start: 202303

REACTIONS (1)
  - Spontaneous haemorrhage [Recovered/Resolved]

NARRATIVE: CASE EVENT DATE: 20240420
